FAERS Safety Report 10667168 (Version 1)
Quarter: 2014Q4

REPORT INFORMATION
  Report Type: Other
  Country: SI (occurrence: SI)
  Receive Date: 20141222
  Receipt Date: 20141222
  Transmission Date: 20150529
  Serious: Yes (Life-Threatening, Hospitalization)
  Sender: FDA-Public Use
  Company Number: SI-SUN PHARMACEUTICAL INDUSTRIES LTD-2014SUN02897

PATIENT

DRUGS (3)
  1. RISSET [Concomitant]
     Active Substance: RISPERIDONE
     Dosage: 0.5 MG, UNK
  2. DOXORUBICIN HYDROCHLORIDE LIPOSOME INJECTION USP 2MG/ML [Suspect]
     Active Substance: DOXORUBICIN HYDROCHLORIDE
     Indication: OVARIAN CANCER METASTATIC
     Dosage: 60 MG,
     Route: 042
     Dates: start: 20141125, end: 20141126
  3. LAMICTAL [Concomitant]
     Active Substance: LAMOTRIGINE
     Dosage: 5 MG, UNK

REACTIONS (5)
  - Vertigo [Recovered/Resolved]
  - Nausea [Recovered/Resolved]
  - Hypotension [Recovered/Resolved]
  - Somnolence [Recovered/Resolved]
  - Disorientation [Recovered/Resolved]

NARRATIVE: CASE EVENT DATE: 20141125
